FAERS Safety Report 7343090-9 (Version None)
Quarter: 2011Q1

REPORT INFORMATION
  Report Type: 
  Country: None (occurrence: None)
  Receive Date: 20110310
  Receipt Date: 20110228
  Transmission Date: 20110831
  Serious: Yes (Life-Threatening)
  Sender: FDA-Public Use
  Company Number: US-BAYER-2011-020862

PATIENT
  Sex: Female

DRUGS (1)
  1. CIPRO [Suspect]
     Indication: INFECTION
     Route: 048

REACTIONS (1)
  - ADVERSE REACTION [None]
